FAERS Safety Report 17651498 (Version 1)
Quarter: 2020Q2

REPORT INFORMATION
  Report Type: Spontaneous
  Country: CN (occurrence: CN)
  Receive Date: 20200409
  Receipt Date: 20200409
  Transmission Date: 20200713
  Serious: Yes (Other)
  Sender: FDA-Public Use
  Company Number: CN-PFIZER INC-2020144108

PATIENT
  Age: 54 Year
  Sex: Female
  Weight: 55 kg

DRUGS (3)
  1. ZYVOX [Suspect]
     Active Substance: LINEZOLID
     Indication: PNEUMONIA STAPHYLOCOCCAL
     Dosage: 0.600 G, 1X/DAY
     Route: 041
     Dates: start: 20200318, end: 20200331
  2. ZYVOX [Suspect]
     Active Substance: LINEZOLID
     Indication: SEPSIS
  3. PIPERACILLIN SODIUM/TAZOBACTAM SODIUM [Concomitant]
     Active Substance: PIPERACILLIN SODIUM\TAZOBACTAM SODIUM
     Indication: ANTI-INFECTIVE THERAPY
     Dosage: 3.375 G, 1X/DAY
     Route: 041
     Dates: start: 20200322, end: 20200322

REACTIONS (2)
  - Renal failure [Unknown]
  - Platelet count decreased [Unknown]

NARRATIVE: CASE EVENT DATE: 20200328
